FAERS Safety Report 14080105 (Version 2)
Quarter: 2017Q4

REPORT INFORMATION
  Report Type: Spontaneous
  Country: US (occurrence: US)
  Receive Date: 20171012
  Receipt Date: 20171020
  Transmission Date: 20180321
  Serious: Yes (Death, Life-Threatening, Hospitalization)
  Sender: FDA-Public Use
  Company Number: US-UNITED THERAPEUTICS-UNT-2017-014566

PATIENT
  Age: 75 Year
  Sex: Female
  Weight: 70.3 kg

DRUGS (1)
  1. REMODULIN [Suspect]
     Active Substance: TREPROSTINIL
     Indication: PULMONARY HYPERTENSION
     Dosage: 0.042 ?G/KG, CONTINUING
     Route: 058
     Dates: start: 20140116

REACTIONS (4)
  - Fall [Recovered/Resolved]
  - Oxygen saturation abnormal [Unknown]
  - Post procedural complication [Fatal]
  - Hip fracture [Fatal]

NARRATIVE: CASE EVENT DATE: 201710
